FAERS Safety Report 25741408 (Version 2)
Quarter: 2025Q3

REPORT INFORMATION
  Report Type: Spontaneous
  Country: EU (occurrence: EU)
  Receive Date: 20250829
  Receipt Date: 20250908
  Transmission Date: 20251021
  Serious: Yes (Other)
  Sender: INCYTE
  Company Number: EU-002147023-NVSC2025IE134488

PATIENT

DRUGS (1)
  1. RUXOLITINIB [Suspect]
     Active Substance: RUXOLITINIB
     Indication: Polycythaemia
     Dosage: 20 MG, BID
     Route: 065

REACTIONS (3)
  - Choking [Unknown]
  - Retching [Unknown]
  - Product use complaint [Unknown]
